FAERS Safety Report 15562811 (Version 1)
Quarter: 2018Q4

REPORT INFORMATION
  Report Type: Spontaneous
  Country: US (occurrence: US)
  Receive Date: 20181029
  Receipt Date: 20181029
  Transmission Date: 20190205
  Serious: Yes (Disabling, Other)
  Sender: FDA-Public Use
  Company Number: None

PATIENT
  Age: 57 Year
  Sex: Female
  Weight: 78.75 kg

DRUGS (7)
  1. CYMBALTA [Concomitant]
     Active Substance: DULOXETINE HYDROCHLORIDE
  2. ACYCLOVIR. [Concomitant]
     Active Substance: ACYCLOVIR
  3. PEGASYS [Suspect]
     Active Substance: PEGINTERFERON ALFA-2A
     Indication: HEPATITIS C
     Route: 058
     Dates: start: 20110501, end: 20111101
  4. RIBAVIRIN. [Suspect]
     Active Substance: RIBAVIRIN
  5. AMBIEN [Concomitant]
     Active Substance: ZOLPIDEM TARTRATE
  6. GAMMA GLOBULINS [Concomitant]
  7. TRAMADOL. [Concomitant]
     Active Substance: TRAMADOL

REACTIONS (16)
  - Thinking abnormal [None]
  - Impaired self-care [None]
  - Suicidal ideation [None]
  - Drug intolerance [None]
  - Impaired work ability [None]
  - Sjogren^s syndrome [None]
  - Gastrointestinal disorder [None]
  - Muscle spasms [None]
  - Depression [None]
  - Nervous system disorder [None]
  - Memory impairment [None]
  - Fatigue [None]
  - Mental impairment [None]
  - Immune system disorder [None]
  - Tremor [None]
  - Mobility decreased [None]

NARRATIVE: CASE EVENT DATE: 20110801
